FAERS Safety Report 7361635-X (Version None)
Quarter: 2011Q1

REPORT INFORMATION
  Report Type: 
  Country: None (occurrence: None)
  Receive Date: 20110309
  Receipt Date: 20110225
  Transmission Date: 20110831
  Serious: Yes (Hospitalization)
  Sender: FDA-Public Use
  Company Number: IPC201102-000145

PATIENT
  Age: 52 Year
  Sex: Male

DRUGS (9)
  1. PREDNISOLONE [Suspect]
     Indication: SARCOIDOSIS
     Dosage: 30 MG DAILY, 40 MG DAILY, ONE MONTH PRIOR TO ONSET OF FEVER
  2. AZATHIOPRINE [Suspect]
     Dosage: 50 MG DAILY
  3. PANTOPRAZOLE [Suspect]
     Dosage: 20 MG, DAILY MEDICATION HAD REMAINED STABLE FOR OVER 1 YEAR
  4. ZOLPIDEM [Suspect]
     Dosage: 10 MG AT BED TUNE, MEDICATION HAD REMAINED STABLE FOR OVER 1 YEAR
  5. FLUTICASONE+ SALMETEROL [Suspect]
     Dosage: 500/50 UG 1 PUFF TWICE DAILY, MEDICATION HAD REMAINED STABLE FOR OVER 1 YEAR
  6. LOVASTATIN [Suspect]
     Dosage: 20 MG, DAILY MEDICATION HAD REMAINED STABLE FOR OVER 1 YEAR
  7. IBANDRONATE [Suspect]
     Dosage: 150 MG MONTHLY, MEDICATION HAD REMAINED STABLE FOR OVER 1 YEAR
  8. ALBUTEROL [Suspect]
     Dosage: AS NEEDED, MEDICATION HAD REMAINED STABLE FOR OVER 1 YEAR
  9. HYDROXYCHLOROQUINE SULFATE [Suspect]
     Indication: SARCOIDOSIS
     Dosage: 200 MG TWICE DAILY, MEDICATION HAD REMAINED STABLE FOR OVER 1 YEAR

REACTIONS (11)
  - CHILLS [None]
  - BLOOD PRESSURE DIASTOLIC DECREASED [None]
  - WHITE BLOOD CELL COUNT INCREASED [None]
  - DYSPNOEA [None]
  - PYREXIA [None]
  - RENAL FAILURE ACUTE [None]
  - CONDITION AGGRAVATED [None]
  - NAUSEA [None]
  - VOMITING [None]
  - LYMPHADENOPATHY [None]
  - NEUTROPHIL PERCENTAGE INCREASED [None]
